FAERS Safety Report 18256354 (Version 1)
Quarter: 2020Q3

REPORT INFORMATION
  Report Type: Spontaneous
  Country: US (occurrence: US)
  Receive Date: 20200911
  Receipt Date: 20200911
  Transmission Date: 20201103
  Serious: Yes (Hospitalization, Other)
  Sender: FDA-Public Use
  Company Number: US-INVENTIA-000415

PATIENT
  Age: 27 Year
  Sex: Male

DRUGS (1)
  1. METFORMIN [Suspect]
     Active Substance: METFORMIN HYDROCHLORIDE
     Indication: DIABETES MELLITUS

REACTIONS (4)
  - Condition aggravated [Recovered/Resolved]
  - Deafness [Recovered/Resolved]
  - MELAS syndrome [Recovered/Resolved]
  - Diabetes mellitus [Recovered/Resolved]
